FAERS Safety Report 16940979 (Version 2)
Quarter: 2019Q4

REPORT INFORMATION
  Report Type: Not Available
  Country: US (occurrence: US)
  Receive Date: 20191021
  Receipt Date: 20191104
  Transmission Date: 20200122
  Serious: No
  Sender: FDA-Public Use
  Company Number: US-NEUROCRINE BIOSCIENCES INC.-2019NBI03053

PATIENT
  Age: 65 Year
  Sex: Male

DRUGS (6)
  1. INGREZZA [Suspect]
     Active Substance: VALBENAZINE
     Indication: TARDIVE DYSKINESIA
     Route: 048
     Dates: start: 20180712
  2. MYCOPHENOLATE [Concomitant]
     Active Substance: MYCOPHENOLIC ACID
     Indication: RENAL TRANSPLANT
     Route: 048
     Dates: start: 20181207
  3. ZIPRASIDONE. [Concomitant]
     Active Substance: ZIPRASIDONE
     Indication: SCHIZOPHRENIA
     Route: 048
     Dates: start: 20181207
  4. EFFEXOR [Concomitant]
     Active Substance: VENLAFAXINE HYDROCHLORIDE
     Indication: DEPRESSION
     Route: 048
     Dates: start: 20181207
  5. AMANTADINE. [Concomitant]
     Active Substance: AMANTADINE HYDROCHLORIDE
     Indication: PARKINSONISM
     Route: 048
     Dates: start: 20181207
  6. MIRTAZAPINE. [Concomitant]
     Active Substance: MIRTAZAPINE
     Indication: SCHIZOPHRENIA
     Route: 048
     Dates: start: 20181207

REACTIONS (3)
  - Muscle spasms [Unknown]
  - Parkinsonism [Recovering/Resolving]
  - Choking [Unknown]

NARRATIVE: CASE EVENT DATE: 20190904
